FAERS Safety Report 19878520 (Version 1)
Quarter: 2021Q3

REPORT INFORMATION
  Report Type: Report from Study
  Country: CN (occurrence: CN)
  Receive Date: 20210923
  Receipt Date: 20210923
  Transmission Date: 20211014
  Serious: Yes (Death, Hospitalization, Other)
  Sender: FDA-Public Use
  Company Number: NVSC2021CN203303

PATIENT
  Age: 70 Year
  Sex: Female
  Weight: 39 kg

DRUGS (8)
  1. TYKERB [Suspect]
     Active Substance: LAPATINIB DITOSYLATE
     Dosage: 05 DF, QD (250 MG, TABLET)
     Route: 048
     Dates: start: 20210709, end: 20210715
  2. TYKERB [Suspect]
     Active Substance: LAPATINIB DITOSYLATE
     Dosage: 5 DF, QD (250 MG, TABLET)
     Route: 048
     Dates: start: 20210619, end: 20210706
  3. CAPECITABINE. [Suspect]
     Active Substance: CAPECITABINE
     Dosage: 2 DF, BID (2 TABLETS IN THE MORNING, 2 TABLETS IN THE EVENING)
     Route: 048
     Dates: start: 20210709, end: 20210713
  4. CAPECITABINE. [Suspect]
     Active Substance: CAPECITABINE
     Dosage: 2 DF, BID (2 TABLETS IN THE MORNING, 2 TABLETS IN THE EVENING)
     Route: 048
     Dates: start: 20210601, end: 20210614
  5. CAPECITABINE. [Suspect]
     Active Substance: CAPECITABINE
     Dosage: 2 DF, BID (2 TABLETS IN THE MORNING, 2 TABLETS IN THE EVENING)
     Route: 048
     Dates: start: 20210619, end: 20210702
  6. CAPECITABINE. [Suspect]
     Active Substance: CAPECITABINE
     Indication: BREAST CANCER
     Dosage: (2 TABLETS IN THE MORNING, 3 TABLETS IN THE EVENING)
     Route: 048
     Dates: start: 20210508, end: 20210522
  7. TYKERB [Suspect]
     Active Substance: LAPATINIB DITOSYLATE
     Dosage: 4 DF, QD (250 MG, TABLET)
     Route: 048
     Dates: start: 20210716, end: 20210717
  8. TYKERB [Suspect]
     Active Substance: LAPATINIB DITOSYLATE
     Indication: BREAST CANCER
     Dosage: 5 DF, QD (250 MG, TABLET)
     Route: 048
     Dates: start: 20210508, end: 20210617

REACTIONS (23)
  - Red blood cell count increased [Unknown]
  - Sedation [Unknown]
  - Chest discomfort [Unknown]
  - Blood potassium increased [Unknown]
  - Inflammation [Unknown]
  - Metastases to bone [Unknown]
  - Malignant neoplasm progression [Unknown]
  - Swelling [Unknown]
  - Bone densitometry [Unknown]
  - Hypersensitivity [Unknown]
  - Pleural effusion [Not Recovered/Not Resolved]
  - Hepatic failure [Fatal]
  - Breast cancer [Unknown]
  - Metastases to central nervous system [Fatal]
  - Dyspnoea [Unknown]
  - Musculoskeletal chest pain [Unknown]
  - Blood pressure measurement [Unknown]
  - Pneumonitis [Unknown]
  - Insomnia [Unknown]
  - Anaemia [Unknown]
  - Pain [Unknown]
  - Pleural thickening [Unknown]
  - Mucosal disorder [Unknown]

NARRATIVE: CASE EVENT DATE: 20210719
